FAERS Safety Report 17678037 (Version 1)
Quarter: 2020Q2

REPORT INFORMATION
  Report Type: Spontaneous
  Country: US (occurrence: US)
  Receive Date: 20200416
  Receipt Date: 20200416
  Transmission Date: 20200714
  Serious: Yes (Hospitalization, Other)
  Sender: FDA-Public Use
  Company Number: US-INSUD PHARMA-2004US00060

PATIENT

DRUGS (2)
  1. PROGESTERONE. [Suspect]
     Active Substance: PROGESTERONE
     Indication: CONTRACEPTION
     Dosage: LOW-DOSE INTRAUTERINE DEVICE
     Route: 015
  2. PROGESTERONE;ESTROGENS [Suspect]
     Active Substance: ESTROGENS\PROGESTERONE
     Indication: CONTRACEPTION
     Dosage: ESTROGEN-PROGESTERONE PATCH
     Route: 062

REACTIONS (5)
  - Myocardial ischaemia [Unknown]
  - Angina pectoris [Unknown]
  - Arterial intramural haematoma [Unknown]
  - Coronary artery dissection [Recovering/Resolving]
  - Chest pain [Unknown]
